FAERS Safety Report 10586692 (Version 1)
Quarter: 2014Q4

REPORT INFORMATION
  Report Type: Spontaneous
  Country: CN (occurrence: None)
  Receive Date: 20141113
  Receipt Date: 20141113
  Transmission Date: 20150529
  Serious: Yes (Hospitalization)
  Sender: FDA-Public Use
  Company Number: IMP_08111_2014

PATIENT
  Age: 22 Year
  Sex: Male

DRUGS (1)
  1. DIVALPROEX SODIUM. [Suspect]
     Active Substance: DIVALPROEX SODIUM
     Indication: PRODUCT USED FOR UNKNOWN INDICATION
     Dosage: 50 G 1X, (NOT THE PRESCRIBED AMOUNT) ORAL
     Route: 048

REACTIONS (8)
  - Exposure via ingestion [None]
  - Intracranial pressure increased [None]
  - Haemodialysis [None]
  - Brain oedema [None]
  - Intentional overdose [None]
  - Pupils unequal [None]
  - Depressed level of consciousness [None]
  - Ammonia increased [None]
